FAERS Safety Report 8351202-3 (Version None)
Quarter: 2012Q2

REPORT INFORMATION
  Report Type: 
  Country: None (occurrence: None)
  Receive Date: 20120510
  Receipt Date: 20120503
  Transmission Date: 20120825
  Serious: Yes (Other)
  Sender: FDA-Public Use
  Company Number: CH-ABBOTT-12P-151-0932489-00

PATIENT
  Sex: Female

DRUGS (1)
  1. LUCRINE DEPOT 1 MONTH [Suspect]
     Indication: ENDOMETRIOSIS
     Dosage: 2 ADMINISTRATIONS

REACTIONS (2)
  - HAEMORRHAGIC ANAEMIA [None]
  - VAGINAL HAEMORRHAGE [None]
